FAERS Safety Report 11920229 (Version 1)
Quarter: 2016Q1

REPORT INFORMATION
  Report Type: Spontaneous
  Country: BR (occurrence: BR)
  Receive Date: 20160115
  Receipt Date: 20160115
  Transmission Date: 20160526
  Serious: Yes (Disabling)
  Sender: FDA-Public Use
  Company Number: BR-PFIZER INC-2016014174

PATIENT
  Sex: Female

DRUGS (3)
  1. CENTRUM WOMEN [Suspect]
     Active Substance: VITAMINS
     Route: 048
  2. ATENOLOL. [Suspect]
     Active Substance: ATENOLOL
     Dosage: 25 MG, 1X/DAY
     Route: 048
  3. ATENOLOL. [Suspect]
     Active Substance: ATENOLOL
     Dosage: 25 MG, 2X/DAY
     Route: 048

REACTIONS (4)
  - Tachycardia [Recovered/Resolved]
  - Back pain [Not Recovered/Not Resolved]
  - No therapeutic response [None]
  - Insomnia [Recovered/Resolved]
